FAERS Safety Report 9614421 (Version 1)
Quarter: 2013Q4

REPORT INFORMATION
  Report Type: Spontaneous
  Country: US (occurrence: None)
  Receive Date: 20131007
  Receipt Date: 20131007
  Transmission Date: 20140711
  Serious: Yes (Hospitalization)
  Sender: FDA-Public Use
  Company Number: None

PATIENT
  Age: 52 Year
  Sex: Male
  Weight: 81.8 kg

DRUGS (4)
  1. EPLERENONE [Suspect]
     Indication: CARDIAC FAILURE CONGESTIVE
     Route: 048
     Dates: start: 20130208, end: 20130330
  2. EPLERENONE [Suspect]
     Indication: EJECTION FRACTION DECREASED
     Route: 048
     Dates: start: 20130208, end: 20130330
  3. FUROSEMIDE [Suspect]
     Indication: CARDIAC FAILURE CONGESTIVE
     Route: 048
     Dates: start: 20110721
  4. FUROSEMIDE [Suspect]
     Indication: EJECTION FRACTION DECREASED
     Route: 048
     Dates: start: 20110721

REACTIONS (4)
  - Renal failure acute [None]
  - Hyperkalaemia [None]
  - Pain in extremity [None]
  - Muscle fatigue [None]
